FAERS Safety Report 7891563-2 (Version None)
Quarter: 2011Q4

REPORT INFORMATION
  Report Type: 
  Country: None (occurrence: None)
  Receive Date: 20111103
  Receipt Date: 20110808
  Transmission Date: 20120403
  Serious: No
  Sender: FDA-Public Use
  Company Number: US-AMGEN-USASP2011040108

PATIENT
  Age: 48 Year
  Sex: Female
  Weight: 126.98 kg

DRUGS (7)
  1. NOVOLIN R [Concomitant]
  2. ENBREL [Suspect]
     Indication: RHEUMATOID ARTHRITIS
     Dosage: 50 MG, QWK
     Route: 058
     Dates: start: 20110719
  3. LORTAB [Concomitant]
     Route: 048
  4. GABAPENTIN [Concomitant]
     Dosage: 100 MG, UNK
     Route: 048
  5. ALBUTEROL [Concomitant]
     Dosage: 90 MUG, UNK
  6. METHOTREXATE [Concomitant]
     Dosage: 2.5 MG, QWK
     Route: 048
     Dates: start: 20110708
  7. FOLIC ACID [Concomitant]
     Dosage: 20 MG, UNK
     Route: 048

REACTIONS (6)
  - MALAISE [None]
  - GAIT DISTURBANCE [None]
  - ABDOMINAL DISCOMFORT [None]
  - DRUG INEFFECTIVE [None]
  - BONE PAIN [None]
  - FATIGUE [None]
